FAERS Safety Report 8508721-6 (Version None)
Quarter: 2012Q3

REPORT INFORMATION
  Report Type: 
  Country: None (occurrence: None)
  Receive Date: 20120713
  Receipt Date: 20120625
  Transmission Date: 20120928
  Serious: No
  Sender: FDA-Public Use
  Company Number: US-ASTRAZENECA-2012SE42916

PATIENT
  Age: 53 Year
  Sex: Male

DRUGS (1)
  1. PRILOSEC [Suspect]
     Route: 048

REACTIONS (4)
  - ADVERSE EVENT [None]
  - ABDOMINAL DISTENSION [None]
  - DRUG INEFFECTIVE [None]
  - MALAISE [None]
